FAERS Safety Report 12638258 (Version 2)
Quarter: 2017Q1

REPORT INFORMATION
  Report Type: Spontaneous
  Country: US (occurrence: US)
  Receive Date: 20160809
  Receipt Date: 20170209
  Transmission Date: 20170428
  Serious: No
  Sender: FDA-Public Use
  Company Number: US-SA-2016SA087368

PATIENT
  Age: 49 Year
  Sex: Male

DRUGS (6)
  1. ZETIA [Concomitant]
     Active Substance: EZETIMIBE
  2. ANAVAR [Concomitant]
     Active Substance: OXANDROLONE
     Dates: end: 201609
  3. PRALUENT [Suspect]
     Active Substance: ALIROCUMAB
     Route: 058
  4. ALIROCUMAB PREFILLED PEN [Concomitant]
     Active Substance: ALIROCUMAB
  5. CRESTOR [Concomitant]
     Active Substance: ROSUVASTATIN CALCIUM
  6. TESTOSTERONE. [Concomitant]
     Active Substance: TESTOSTERONE
     Dates: end: 201609

REACTIONS (6)
  - Low density lipoprotein increased [Unknown]
  - Blood cholesterol increased [Unknown]
  - Therapeutic response decreased [Unknown]
  - High density lipoprotein decreased [Unknown]
  - Abnormal faeces [Recovered/Resolved]
  - Product use issue [Unknown]

NARRATIVE: CASE EVENT DATE: 2016
